FAERS Safety Report 9322796 (Version 2)
Quarter: 2013Q4

REPORT INFORMATION
  Report Type: Spontaneous
  Country: US (occurrence: US)
  Receive Date: 20130601
  Receipt Date: 20131220
  Transmission Date: 20140711
  Serious: Yes (Hospitalization, Disabling)
  Sender: FDA-Public Use
  Company Number: US-ASTRAZENECA-2013SE38673

PATIENT
  Age: 64 Year
  Sex: Female
  Weight: 55.8 kg

DRUGS (13)
  1. NEXIUM [Suspect]
     Indication: GASTROOESOPHAGEAL REFLUX DISEASE
     Route: 048
     Dates: start: 2002
  2. NEXIUM [Suspect]
     Indication: GASTROOESOPHAGEAL REFLUX DISEASE
     Route: 048
     Dates: start: 20081111
  3. TAGAMET [Concomitant]
     Dosage: OCCASIONALLY
     Dates: start: 2002
  4. TUMS [Concomitant]
     Dosage: OCCASIONALLY
     Dates: start: 2002
  5. PEPTO BISMOL [Concomitant]
     Dosage: OCCASIONALLY
     Dates: start: 2002
  6. ASPIRINE [Concomitant]
     Indication: CARDIAC DISORDER
  7. GLUCOSAMINE [Concomitant]
     Indication: ARTHRALGIA
  8. SIMVASTATIN [Concomitant]
     Indication: BLOOD CHOLESTEROL
  9. PROBIOTICS [Concomitant]
  10. TOPROL XL [Concomitant]
  11. HYDROCODONE ACETAMINOPHEN [Concomitant]
     Indication: PAIN
     Dosage: 7.5-500 MG TAKE 1-2 TABLET EVERY 4-6 HOURS AS NEEDED
  12. MELOXICAM [Concomitant]
  13. ZOLPIDEM [Concomitant]
     Dates: start: 20081202

REACTIONS (4)
  - Foot fracture [Unknown]
  - Gastroenteritis salmonella [Unknown]
  - Osteoporosis [Unknown]
  - Bone disorder [Unknown]
